FAERS Safety Report 14510923 (Version 1)
Quarter: 2018Q1

REPORT INFORMATION
  Report Type: Spontaneous
  Country: JP (occurrence: JP)
  Receive Date: 20180209
  Receipt Date: 20180209
  Transmission Date: 20180509
  Serious: Yes (Other)
  Sender: FDA-Public Use
  Company Number: JP-PFIZER INC-2018026311

PATIENT
  Age: 76 Year
  Sex: Female
  Weight: 41.5 kg

DRUGS (3)
  1. LYRICA [Suspect]
     Active Substance: PREGABALIN
     Indication: NEURALGIA
     Dosage: 50 MG, DAILY
     Route: 048
     Dates: start: 20171208, end: 20180116
  2. LIMAPROST [Concomitant]
     Active Substance: LIMAPROST
     Indication: LUMBAR SPINAL STENOSIS
     Dosage: 15 UG, DAILY
     Route: 048
     Dates: start: 201407
  3. RETICOLAN [Concomitant]
     Active Substance: METHYLCOBALAMIN
     Indication: NEUROPATHY PERIPHERAL
     Dosage: 1500 UG, DAILY
     Route: 048
     Dates: start: 200801

REACTIONS (1)
  - Gait inability [Recovering/Resolving]

NARRATIVE: CASE EVENT DATE: 20171228
